FAERS Safety Report 4962524-8 (Version None)
Quarter: 2006Q1

REPORT INFORMATION
  Report Type: 
  Country: None (occurrence: None)
  Receive Date: 20060201
  Receipt Date: 20051031
  Transmission Date: 20060701
  Serious: No
  Sender: FDA-Public Use
  Company Number: 2005PV0044393

PATIENT
  Age: 51 Year
  Sex: Female
  Weight: 80.7403 kg

DRUGS (5)
  1. BYETTA [Suspect]
     Indication: DIABETES MELLITUS
     Dosage: 10 + 5 MCG; BID; SC
     Route: 058
     Dates: start: 20050902, end: 20051023
  2. BYETTA [Suspect]
     Indication: DIABETES MELLITUS
     Dosage: 10 + 5 MCG; BID; SC
     Route: 058
     Dates: start: 20051024
  3. K-DUR 10 [Concomitant]
  4. ACTOS [Concomitant]
  5. GLUCOPHAGE XR [Concomitant]

REACTIONS (5)
  - CHILLS [None]
  - DIZZINESS [None]
  - FEELING JITTERY [None]
  - HEADACHE [None]
  - NAUSEA [None]
